FAERS Safety Report 7092105-4 (Version None)
Quarter: 2010Q4

REPORT INFORMATION
  Report Type: 
  Country: None (occurrence: None)
  Receive Date: 20101101
  Receipt Date: 20101015
  Transmission Date: 20110411
  Serious: Yes (Other)
  Sender: FDA-Public Use
  Company Number: AUR-APL-2010-02614

PATIENT
  Age: 69 Year
  Sex: Female
  Weight: 58.9676 kg

DRUGS (6)
  1. AMLODIPINE [Suspect]
     Indication: CEREBROVASCULAR ACCIDENT
     Dosage: 10MG - DAILY - ORAL
     Route: 048
     Dates: start: 20100501, end: 20100101
  2. LEVETIRACETAM [Suspect]
     Indication: CONVULSION
     Dates: start: 20090501, end: 20100101
  3. SIMVASTATIN [Concomitant]
  4. RAMIPRIL [Concomitant]
  5. LEVOTHYROXINE SODIUM [Concomitant]
  6. IBUPROFEN [Concomitant]

REACTIONS (4)
  - BLOOD PRESSURE ABNORMAL [None]
  - CEREBROVASCULAR ACCIDENT [None]
  - CONVULSION [None]
  - DRUG INEFFECTIVE [None]
